FAERS Safety Report 6647447-0 (Version None)
Quarter: 2010Q1

REPORT INFORMATION
  Report Type: 
  Country: None (occurrence: None)
  Receive Date: 20100323
  Receipt Date: 20100312
  Transmission Date: 20100710
  Serious: Yes (Life-Threatening, Hospitalization)
  Sender: FDA-Public Use
  Company Number: DE-ABBOTT-10P-062-0632180-00

PATIENT
  Sex: Male
  Weight: 66 kg

DRUGS (4)
  1. KALETRA [Suspect]
     Indication: HIV INFECTION
     Route: 048
     Dates: start: 20100212
  2. TRUVADA [Concomitant]
     Indication: HIV INFECTION
     Dates: start: 20100212
  3. COTRIM [Concomitant]
     Indication: ANTIBIOTIC THERAPY
     Dates: start: 20100212
  4. FLUCONAZOLE [Concomitant]
     Indication: ANTIBIOTIC THERAPY
     Dates: start: 20100209

REACTIONS (1)
  - HAEMOPTYSIS [None]
